FAERS Safety Report 4349810-X (Version None)
Quarter: 2004Q2

REPORT INFORMATION
  Report Type: 
  Country: None (occurrence: None)
  Receive Date: 20040426
  Receipt Date: 20040414
  Transmission Date: 20050107
  Serious: Yes (Hospitalization)
  Sender: FDA-Public Use
  Company Number: 200307302

PATIENT
  Age: 54 Year
  Sex: Female
  Weight: 51.7101 kg

DRUGS (6)
  1. BOTOX [Suspect]
     Indication: MIGRAINE
     Dosage: 50 UNITS PRN IM
     Route: 030
     Dates: start: 20030416
  2. BOTOX [Suspect]
     Indication: MUSCLE SPASMS
     Dosage: 50 UNITS PRN IM
     Route: 030
     Dates: start: 20030416
  3. BOTOX [Suspect]
     Indication: MIGRAINE
     Dosage: 50 UNITS PRN  IM
     Route: 030
     Dates: start: 20030416
  4. BOTOX [Suspect]
     Indication: MUSCLE SPASMS
     Dosage: 50 UNITS PRN  IM
     Route: 030
     Dates: start: 20030416
  5. WELLBUTRIN [Concomitant]
  6. VIOXX [Concomitant]

REACTIONS (10)
  - ALLODYNIA [None]
  - BEDRIDDEN [None]
  - HEAD DISCOMFORT [None]
  - HYPOAESTHESIA [None]
  - INJECTION SITE PAIN [None]
  - JOINT STIFFNESS [None]
  - MIGRAINE [None]
  - MUSCULAR WEAKNESS [None]
  - PAIN [None]
  - PARAESTHESIA [None]
